FAERS Safety Report 8215925-9 (Version None)
Quarter: 2012Q1

REPORT INFORMATION
  Report Type: 
  Country: None (occurrence: None)
  Receive Date: 20120316
  Receipt Date: 20120307
  Transmission Date: 20120608
  Serious: Yes (Hospitalization)
  Sender: FDA-Public Use
  Company Number: SE-JNJFOC-20120303939

PATIENT
  Age: 62 Year
  Sex: Female

DRUGS (5)
  1. REMICADE [Suspect]
     Route: 042
     Dates: start: 20100928
  2. UNSPECIFED MEDICATIONS [Concomitant]
     Route: 065
  3. SULFASALAZINE [Suspect]
     Indication: PRODUCT USED FOR UNKNOWN INDICATION
     Route: 065
     Dates: end: 20110401
  4. REMICADE [Suspect]
     Indication: CROHN'S DISEASE
     Dosage: 2ND INFUSION
     Route: 042
     Dates: start: 20101119
  5. HUMIRA [Suspect]
     Indication: PRODUCT USED FOR UNKNOWN INDICATION
     Route: 065
     Dates: start: 20101214, end: 20110401

REACTIONS (3)
  - ALVEOLITIS [None]
  - INFUSION RELATED REACTION [None]
  - ANAEMIA [None]
